FAERS Safety Report 15533711 (Version 1)
Quarter: 2018Q4

REPORT INFORMATION
  Report Type: Spontaneous
  Country: US (occurrence: US)
  Receive Date: 20181019
  Receipt Date: 20181019
  Transmission Date: 20190205
  Serious: No
  Sender: FDA-Public Use
  Company Number: US-BAYER-2018-195122

PATIENT
  Age: 54 Year
  Sex: Female

DRUGS (1)
  1. GADAVIST [Suspect]
     Active Substance: GADOBUTROL
     Indication: NUCLEAR MAGNETIC RESONANCE IMAGING
     Dosage: 15 MG, ONCE
     Route: 042
     Dates: start: 20180904, end: 20180904

REACTIONS (8)
  - Muscular weakness [Not Recovered/Not Resolved]
  - Gait disturbance [Not Recovered/Not Resolved]
  - Paraesthesia [None]
  - Feeling hot [None]
  - Dysgeusia [None]
  - Hypoaesthesia [None]
  - Myalgia [Not Recovered/Not Resolved]
  - Mobility decreased [None]

NARRATIVE: CASE EVENT DATE: 20180904
